FAERS Safety Report 11048975 (Version 1)
Quarter: 2015Q2

REPORT INFORMATION
  Report Type: Spontaneous
  Country: US (occurrence: US)
  Receive Date: 20150420
  Receipt Date: 20150420
  Transmission Date: 20150821
  Serious: Yes (Other)
  Sender: FDA-Public Use
  Company Number: US-PFIZER INC-2015135061

PATIENT
  Age: 68 Year
  Sex: Female
  Weight: 77 kg

DRUGS (5)
  1. CELEBREX [Suspect]
     Active Substance: CELECOXIB
     Indication: SPINAL OSTEOARTHRITIS
  2. CARVEDILOL. [Concomitant]
     Active Substance: CARVEDILOL
     Indication: BLOOD PRESSURE ABNORMAL
     Dosage: 12.5 MG, 2X/DAY (12.5 MG IN MORNING AND EVENING)
  3. CELEBREX [Suspect]
     Active Substance: CELECOXIB
     Indication: ARTHRITIS
     Dosage: 20-25MG ONCE A DAY (SOMETIMES TWICE A DAY BUT VERY RARELY)
     Dates: start: 2000, end: 2009
  4. CELEBREX [Suspect]
     Active Substance: CELECOXIB
     Indication: INTERVERTEBRAL DISC DEGENERATION
  5. ASPIRIN. [Suspect]
     Active Substance: ASPIRIN
     Indication: ANTIINFLAMMATORY THERAPY
     Dosage: 0.81 MG, 1X/DAY

REACTIONS (1)
  - Gastrointestinal ulcer haemorrhage [Unknown]

NARRATIVE: CASE EVENT DATE: 20091001
